FAERS Safety Report 5208581-5 (Version None)
Quarter: 2006Q4

REPORT INFORMATION
  Report Type: 
  Country: None (occurrence: None)
  Receive Date: 20061027
  Receipt Date: 20060103
  Transmission Date: 20070319
  Serious: Yes (Other)
  Sender: FDA-Public Use
  Company Number: HQWYE747817MAY05

PATIENT
  Age: 71 Year
  Sex: Female
  Weight: 53.57 kg

DRUGS (8)
  1. PREMARIN [Suspect]
     Indication: CARDIAC DISORDER
     Dosage: ORAL
     Route: 048
     Dates: start: 19810101, end: 19990101
  2. PREMARIN [Suspect]
     Indication: OSTEOPOROSIS
     Dosage: ORAL
     Route: 048
     Dates: start: 19810101, end: 19990101
  3. PREMARIN [Suspect]
     Indication: PROPHYLAXIS
     Dosage: ORAL
     Route: 048
     Dates: start: 19810101, end: 19990101
  4. PROVERA [Suspect]
     Indication: DRUG USE FOR UNKNOWN INDICATION
  5. FOSAMAX [Concomitant]
  6. XANAX [Concomitant]
  7. IBUPROFEN [Concomitant]
  8. TRIAMTERENE AND HYDROCHLOROTHIAZIDE ^HARRIS^ ( HYDROCHLOROTHIAZIDE/TRI [Concomitant]

REACTIONS (1)
  - BREAST CANCER [None]
